FAERS Safety Report 22073196 (Version 1)
Quarter: 2023Q1

REPORT INFORMATION
  Report Type: Spontaneous
  Country: US (occurrence: None)
  Receive Date: 20230307
  Receipt Date: 20230307
  Transmission Date: 20230418
  Serious: Yes (Hospitalization)
  Sender: FDA-Public Use
  Company Number: None

PATIENT
  Age: 48 Year
  Sex: Male
  Weight: 101.25 kg

DRUGS (2)
  1. VANCOMYCIN [Suspect]
     Active Substance: VANCOMYCIN
     Indication: Knee arthroplasty
  2. DEVICE [Suspect]
     Active Substance: DEVICE

REACTIONS (13)
  - Incorrect drug administration rate [None]
  - Localised infection [None]
  - Blister infected [None]
  - Migraine [None]
  - Diabetes mellitus [None]
  - Multiple allergies [None]
  - Skin burning sensation [None]
  - Sarcoidosis [None]
  - Granuloma [None]
  - Neoplasm [None]
  - Red blood cell count decreased [None]
  - Hypercalcaemia [None]
  - Bone marrow granuloma [None]

NARRATIVE: CASE EVENT DATE: 20150207
